FAERS Safety Report 7399178-X (Version None)
Quarter: 2011Q1

REPORT INFORMATION
  Report Type: 
  Country: None (occurrence: None)
  Receive Date: 20110328
  Receipt Date: 20110318
  Transmission Date: 20110831
  Serious: Yes (Hospitalization)
  Sender: FDA-Public Use
  Company Number: LEO-2011-00128

PATIENT
  Sex: Female
  Weight: 66 kg

DRUGS (10)
  1. NEURONTIN [Concomitant]
  2. OXYCONTIN [Concomitant]
  3. OXYCODONE HCL [Concomitant]
  4. INNOHEP [Suspect]
     Indication: PULMONARY EMBOLISM
     Dosage: 10000 IU (10000 IU,1 IN 1 D),SUBCUTANEOUS
     Route: 058
     Dates: start: 20091101
  5. INNOHEP [Suspect]
     Indication: DEEP VEIN THROMBOSIS
     Dosage: 10000 IU (10000 IU,1 IN 1 D),SUBCUTANEOUS
     Route: 058
     Dates: start: 20091101
  6. ACETAMINOPHEN [Concomitant]
  7. TARCEVA [Concomitant]
  8. NEXIUM [Concomitant]
  9. AVASTAIN (SIMVASTATIN) [Concomitant]
  10. TAXOL [Concomitant]

REACTIONS (7)
  - BLOOD SODIUM DECREASED [None]
  - ALANINE AMINOTRANSFERASE INCREASED [None]
  - HAEMOGLOBIN DECREASED [None]
  - DEEP VEIN THROMBOSIS [None]
  - ASPARTATE AMINOTRANSFERASE INCREASED [None]
  - PULMONARY EMBOLISM [None]
  - OFF LABEL USE [None]
